FAERS Safety Report 21121669 (Version 1)
Quarter: 2022Q3

REPORT INFORMATION
  Report Type: Spontaneous
  Country: CN (occurrence: CN)
  Receive Date: 20220722
  Receipt Date: 20220722
  Transmission Date: 20221027
  Serious: Yes (Other)
  Sender: FDA-Public Use
  Company Number: CN-BAYER-2022A098411

PATIENT
  Age: 54 Year
  Sex: Female

DRUGS (6)
  1. NEXAVAR [Suspect]
     Active Substance: SORAFENIB
     Indication: Hepatocellular carcinoma
     Dosage: 400 MG, BID
     Dates: start: 201807, end: 201909
  2. STIVARGA [Suspect]
     Active Substance: REGORAFENIB
     Indication: Hepatocellular carcinoma
     Dosage: 160 MG, QD
     Dates: start: 201909, end: 202001
  3. STIVARGA [Suspect]
     Active Substance: REGORAFENIB
     Indication: Metastases to bone
     Dosage: 160 MG, QD
     Dates: start: 202008, end: 202104
  4. SINTILIMAB [Suspect]
     Active Substance: SINTILIMAB
     Indication: Hepatocellular carcinoma
     Dosage: 200 MG, Q3WK
     Dates: start: 201909, end: 202001
  5. SINTILIMAB [Suspect]
     Active Substance: SINTILIMAB
     Indication: Metastases to bone
     Dosage: 200 MG, Q3WK
     Dates: start: 202008, end: 202104
  6. ENTECAVIR [Concomitant]
     Active Substance: ENTECAVIR

REACTIONS (11)
  - Large intestine perforation [Recovered/Resolved]
  - Immune-mediated hepatic disorder [Recovered/Resolved]
  - Pyrexia [Recovered/Resolved]
  - Immune-mediated dermatitis [None]
  - Hypertension [None]
  - Proteinuria [None]
  - Diarrhoea [None]
  - Palmar-plantar erythrodysaesthesia syndrome [None]
  - Drug resistance [None]
  - Product availability issue [None]
  - Incorrect product administration duration [None]

NARRATIVE: CASE EVENT DATE: 20180901
